FAERS Safety Report 23770036 (Version 1)
Quarter: 2024Q2

REPORT INFORMATION
  Report Type: Report from Study
  Country: US (occurrence: US)
  Receive Date: 20240422
  Receipt Date: 20240422
  Transmission Date: 20240716
  Serious: Yes (Other)
  Sender: FDA-Public Use
  Company Number: US-ABBVIE-5729181

PATIENT
  Sex: Female

DRUGS (1)
  1. UBRELVY [Suspect]
     Active Substance: UBROGEPANT
     Indication: Product used for unknown indication
     Dosage: FORM STRENGTH; 50MG TABLET
     Route: 048
     Dates: start: 20240202

REACTIONS (7)
  - Post procedural complication [Not Recovered/Not Resolved]
  - Depression [Recovering/Resolving]
  - Migraine [Unknown]
  - Septic shock [Recovering/Resolving]
  - Colitis ulcerative [Not Recovered/Not Resolved]
  - Neck surgery [Unknown]
  - Spinal operation [Unknown]

NARRATIVE: CASE EVENT DATE: 20240101
